FAERS Safety Report 5198016-3 (Version None)
Quarter: 2007Q1

REPORT INFORMATION
  Report Type: 
  Country: None (occurrence: None)
  Receive Date: 20070104
  Receipt Date: 20061228
  Transmission Date: 20070707
  Serious: Yes (Other)
  Sender: FDA-Public Use
  Company Number: US-JNJFOC-20070100188

PATIENT
  Sex: Male
  Weight: 99.79 kg

DRUGS (4)
  1. FENTANYL TRANSDERMAL SYSTEM [Suspect]
     Indication: PAIN
     Route: 062
  2. GLIPIZIDE [Concomitant]
     Indication: DIABETES MELLITUS
     Route: 048
  3. CORGARD [Concomitant]
     Indication: HYPERTENSION
     Route: 048
  4. TYLENOL [Concomitant]
     Indication: BREAKTHROUGH PAIN
     Route: 048

REACTIONS (7)
  - FEELING JITTERY [None]
  - INADEQUATE ANALGESIA [None]
  - INSOMNIA [None]
  - LIMB TRAUMATIC AMPUTATION [None]
  - NERVOUSNESS [None]
  - SOMNOLENCE [None]
  - YAWNING [None]
